FAERS Safety Report 9498510 (Version 1)
Quarter: 2013Q3

REPORT INFORMATION
  Report Type: Spontaneous
  Country: US (occurrence: None)
  Receive Date: 20130830
  Receipt Date: 20130830
  Transmission Date: 20140515
  Serious: Yes (Other)
  Sender: FDA-Public Use
  Company Number: COL_14270_2013

PATIENT
  Age: 53 Year
  Sex: Female

DRUGS (1)
  1. CHLORHEXIDINE DIGLUCONATE [Suspect]
     Indication: GINGIVITIS
     Route: 048
     Dates: start: 20130815

REACTIONS (4)
  - Stomatitis [None]
  - Oedema mouth [None]
  - Pharyngeal oedema [None]
  - Throat irritation [None]
